FAERS Safety Report 9768410 (Version 1)
Quarter: 2013Q4

REPORT INFORMATION
  Report Type: Spontaneous
  Country: US (occurrence: US)
  Receive Date: 20131217
  Receipt Date: 20131217
  Transmission Date: 20140711
  Serious: No
  Sender: FDA-Public Use
  Company Number: US-009507513-1312USA004370

PATIENT
  Age: 42 Year
  Sex: Female
  Weight: 60.77 kg

DRUGS (3)
  1. NUVARING [Suspect]
     Indication: CONTRACEPTION
     Dosage: 3 WEEKS IN 1 WEEK RING FREE BREAK
     Route: 067
     Dates: start: 20131129
  2. RAMIPRIL [Concomitant]
     Dosage: 2.5 UNK, ONCE
  3. METOPROLOL [Concomitant]
     Dosage: 50 MG, ONCE

REACTIONS (1)
  - Metrorrhagia [Unknown]
